FAERS Safety Report 19206831 (Version 2)
Quarter: 2021Q3

REPORT INFORMATION
  Report Type: Spontaneous
  Country: BR (occurrence: BR)
  Receive Date: 20210503
  Receipt Date: 20210803
  Transmission Date: 20211014
  Serious: Yes (Other)
  Sender: FDA-Public Use
  Company Number: BR-AMERICAN REGENT INC-2021001130

PATIENT
  Age: 29 Year
  Sex: Female
  Weight: 70.1 kg

DRUGS (6)
  1. MALTOFER                           /00023548/ [Suspect]
     Active Substance: IRON POLYMALTOSE
     Indication: IRON DEFICIENCY ANAEMIA
     Dosage: 100 MILLIGRAM, 1 IN 1 D
     Route: 048
     Dates: start: 201902
  2. VENOFER [Suspect]
     Active Substance: IRON SUCROSE
     Dosage: 100 MG
     Route: 042
     Dates: start: 202104
  3. MALTOFER                           /00023548/ [Suspect]
     Active Substance: IRON POLYMALTOSE
     Dosage: 2 COMP A DAY FOR 3 MONTHS (2 IN 1 D)
     Route: 048
     Dates: start: 202101
  4. VENOFER [Suspect]
     Active Substance: IRON SUCROSE
     Dosage: 2 VIALS EVERY 2 WEEKS, FOR A TOTAL OF 4 ADMINISTRATIONS (8 VIALS TOTAL)
     Route: 042
     Dates: start: 20210407
  5. MALTOFER                           /00023548/ [Suspect]
     Active Substance: IRON POLYMALTOSE
     Dosage: 100 MILLIGRAM, 2 IN 1 D
     Route: 048
     Dates: start: 201905, end: 201909
  6. VENOFER [Suspect]
     Active Substance: IRON SUCROSE
     Indication: IRON DEFICIENCY ANAEMIA
     Dosage: 100 MG (5 VIALS OF 5 ML (5X5 ML))
     Route: 042
     Dates: start: 201909

REACTIONS (9)
  - Therapy non-responder [Unknown]
  - Haemoglobin decreased [Unknown]
  - Product availability issue [Unknown]
  - Maternal exposure during pregnancy [Unknown]
  - No adverse event [Unknown]
  - Product dose omission issue [Unknown]
  - Malabsorption [Unknown]
  - Serum ferritin decreased [Unknown]
  - Leukocytosis [Unknown]

NARRATIVE: CASE EVENT DATE: 202101
